FAERS Safety Report 4358890-7 (Version None)
Quarter: 2004Q2

REPORT INFORMATION
  Report Type: 
  Country: None (occurrence: None)
  Receive Date: 20040512
  Receipt Date: 20040427
  Transmission Date: 20050107
  Serious: Yes (Hospitalization, Other)
  Sender: FDA-Public Use
  Company Number: JP_040403071

PATIENT
  Age: 76 Year
  Sex: Female
  Weight: 43 kg

DRUGS (3)
  1. GEMZAR [Suspect]
     Indication: PANCREATIC CARCINOMA
     Dosage: 1200 MG OTHER
     Route: 042
     Dates: start: 20031015, end: 20031119
  2. SEROTONE (AZASETRON HYDROCHLORIDE) [Concomitant]
  3. DECADRON (MEXAMETHASONE SODIUM PHOSPHATE) [Concomitant]

REACTIONS (2)
  - ABDOMINAL PAIN [None]
  - PYREXIA [None]
